FAERS Safety Report 5522594-5 (Version None)
Quarter: 2007Q4

REPORT INFORMATION
  Report Type: 
  Country: None (occurrence: None)
  Receive Date: 20071120
  Receipt Date: 20071108
  Transmission Date: 20080405
  Serious: Yes (Other)
  Sender: FDA-Public Use
  Company Number: JP-PFIZER INC-2007095135

PATIENT
  Age: 70 Year
  Sex: Female

DRUGS (1)
  1. UNASYN [Suspect]
     Dosage: DAILY DOSE:6GRAM
     Route: 042

REACTIONS (1)
  - CHOLESTASIS [None]
